FAERS Safety Report 8394878-7 (Version None)
Quarter: 2012Q2

REPORT INFORMATION
  Report Type: 
  Country: None (occurrence: None)
  Receive Date: 20120530
  Receipt Date: 20120518
  Transmission Date: 20120825
  Serious: Yes (Hospitalization, Other)
  Sender: FDA-Public Use
  Company Number: GB-ELI_LILLY_AND_COMPANY-GB201203006003

PATIENT
  Age: 79 Year
  Sex: Female

DRUGS (2)
  1. PAROXETINE [Concomitant]
  2. ZYPREXA [Suspect]
     Indication: SCHIZOPHRENIA
     Dosage: 10 MG, EACH EVENING
     Route: 048

REACTIONS (2)
  - INTESTINAL PERFORATION [None]
  - INTESTINAL ISCHAEMIA [None]
